FAERS Safety Report 12473551 (Version 1)
Quarter: 2016Q2

REPORT INFORMATION
  Report Type: Report from Study
  Country: DE (occurrence: DE)
  Receive Date: 20160616
  Receipt Date: 20160616
  Transmission Date: 20160815
  Serious: Yes (Life-Threatening, Other)
  Sender: FDA-Public Use
  Company Number: DE-BAYER-2016-117599

PATIENT
  Age: 44 Year
  Sex: Female

DRUGS (1)
  1. QLAIRA [Suspect]
     Active Substance: DIENOGEST\ESTRADIOL VALERATE
     Indication: CONTRACEPTION
     Dosage: 1 DF, QD
     Route: 048
     Dates: start: 201011, end: 201412

REACTIONS (4)
  - Feeling hot [None]
  - Deep vein thrombosis [None]
  - Peripheral swelling [None]
  - Pain in extremity [None]

NARRATIVE: CASE EVENT DATE: 20141226
